FAERS Safety Report 6380071-6 (Version None)
Quarter: 2009Q3

REPORT INFORMATION
  Report Type: 
  Country: None (occurrence: None)
  Receive Date: 20090929
  Receipt Date: 20090914
  Transmission Date: 20100115
  Serious: Yes (Hospitalization)
  Sender: FDA-Public Use
  Company Number: KR-RANBAXY-2009RR-28121

PATIENT
  Age: 59 Year
  Sex: Female

DRUGS (7)
  1. CIPROFLOXACIN HYDROCHLORIDE [Suspect]
     Indication: RENAL ABSCESS
     Dosage: 1000 MG, QD
  2. CIPROFLOXACIN HYDROCHLORIDE [Suspect]
     Dosage: 400 MG, QD
     Route: 042
  3. LAMIVUDINE [Concomitant]
  4. SPIRONOLACTONE [Concomitant]
  5. FUROSEMIDE [Concomitant]
     Indication: ASCITES
  6. LACTULOSE [Concomitant]
     Indication: CONSTIPATION
  7. METRONIDAZOLE [Concomitant]
     Dosage: UNK

REACTIONS (1)
  - BALLISMUS [None]
